FAERS Safety Report 9704731 (Version 2)
Quarter: 2013Q4

REPORT INFORMATION
  Report Type: Spontaneous
  Country: US (occurrence: US)
  Receive Date: 20131122
  Receipt Date: 20131213
  Transmission Date: 20140711
  Serious: Yes (Other)
  Sender: FDA-Public Use
  Company Number: US-TARO-2013P1021203

PATIENT
  Age: 41 Year
  Sex: Female
  Weight: 106.6 kg

DRUGS (10)
  1. WARFARIN SODIUM TABLETS USP 5MG [Suspect]
     Route: 048
     Dates: start: 2004, end: 2006
  2. WARFARIN SODIUM TABLETS USP 5MG [Suspect]
     Route: 048
     Dates: start: 2004, end: 2006
  3. WARFARIN SODIUM TABLETS USP 5MG [Suspect]
     Route: 048
     Dates: start: 201007, end: 20131109
  4. WARFARIN SODIUM TABLETS USP 5MG [Suspect]
     Route: 048
     Dates: start: 201007, end: 20131109
  5. WARFARIN SODIUM TABLETS USP 5MG [Suspect]
     Route: 048
     Dates: start: 20131115
  6. WARFARIN SODIUM TABLETS USP 5MG [Suspect]
     Route: 048
     Dates: start: 20131115
  7. WARFARIN SODIUM TABLETS USP 5MG [Suspect]
     Route: 048
     Dates: start: 20131115
  8. WARFARIN SODIUM TABLETS USP 5MG [Suspect]
     Route: 048
     Dates: start: 20131115
  9. MULTIVITAMIN [Concomitant]
  10. VITAMIN D [Concomitant]

REACTIONS (2)
  - International normalised ratio increased [Recovering/Resolving]
  - Product quality issue [Not Recovered/Not Resolved]
